FAERS Safety Report 8233349-5 (Version None)
Quarter: 2012Q1

REPORT INFORMATION
  Report Type: 
  Country: None (occurrence: None)
  Receive Date: 20120326
  Receipt Date: 20120316
  Transmission Date: 20120608
  Serious: Yes (Other)
  Sender: FDA-Public Use
  Company Number: BR-US-EMD SERONO, INC.-7120334

PATIENT
  Sex: Female

DRUGS (6)
  1. GABAPENTIN [Concomitant]
     Indication: PRODUCT USED FOR UNKNOWN INDICATION
  2. CARBAMAZEPINE [Concomitant]
     Indication: PRODUCT USED FOR UNKNOWN INDICATION
  3. REBIF [Suspect]
     Indication: MULTIPLE SCLEROSIS
     Dates: start: 20111108
  4. HYDROCHLOROTIAZIDE (HYDROCHLOROTHIAZIDE) [Concomitant]
     Indication: PRODUCT USED FOR UNKNOWN INDICATION
  5. ENALAPRIL MALEATE [Concomitant]
     Indication: PRODUCT USED FOR UNKNOWN INDICATION
  6. DIOVAN [Concomitant]
     Indication: PRODUCT USED FOR UNKNOWN INDICATION

REACTIONS (9)
  - INSOMNIA [None]
  - CONSTIPATION [None]
  - FAECAL INCONTINENCE [None]
  - TEMPERATURE DIFFERENCE OF EXTREMITIES [None]
  - HYPERTENSION [None]
  - PYREXIA [None]
  - URINARY INCONTINENCE [None]
  - PAIN [None]
  - CENTRAL NERVOUS SYSTEM LESION [None]
